FAERS Safety Report 11244093 (Version 2)
Quarter: 2015Q3

REPORT INFORMATION
  Report Type: Report from Study
  Country: JP (occurrence: JP)
  Receive Date: 20150707
  Receipt Date: 20150820
  Transmission Date: 20151125
  Serious: Yes (Other)
  Sender: FDA-Public Use
  Company Number: JP-GILEAD-2013-0081032

PATIENT
  Age: 42 Year
  Sex: Female
  Weight: 41 kg

DRUGS (5)
  1. AMBRISENTAN [Suspect]
     Active Substance: AMBRISENTAN
     Dosage: 5 MG, QD
     Route: 048
     Dates: start: 20121028, end: 20131216
  2. AMBRISENTAN [Suspect]
     Active Substance: AMBRISENTAN
     Dosage: 10 MG, QD
     Route: 048
     Dates: start: 20131217
  3. ADCIRCA [Concomitant]
     Active Substance: TADALAFIL
     Indication: ARTERIAL OCCLUSIVE DISEASE
     Route: 048
     Dates: start: 20120228
  4. AMBRISENTAN [Suspect]
     Active Substance: AMBRISENTAN
     Indication: ARTERIAL OCCLUSIVE DISEASE
     Dosage: 2.5 MG, QD
     Route: 048
     Dates: start: 20120228, end: 20121027
  5. WARFARIN [Concomitant]
     Active Substance: WARFARIN
     Route: 048
     Dates: start: 20120228

REACTIONS (1)
  - Hyperthyroidism [Recovering/Resolving]

NARRATIVE: CASE EVENT DATE: 201301
